FAERS Safety Report 4685720-6 (Version None)
Quarter: 2005Q2

REPORT INFORMATION
  Report Type: 
  Country: None (occurrence: None)
  Receive Date: 20050608
  Receipt Date: 20050525
  Transmission Date: 20051028
  Serious: Yes (Other)
  Sender: FDA-Public Use
  Company Number: 2005081215

PATIENT
  Age: 22 Year
  Sex: Male
  Weight: 90.7194 kg

DRUGS (1)
  1. BENADRYL [Suspect]
     Indication: URTICARIA
     Dosage: 2 KAPSEALS ONCE ORAL
     Route: 048
     Dates: start: 20050524, end: 20050524

REACTIONS (2)
  - CHEST PAIN [None]
  - DYSPNOEA [None]
